FAERS Safety Report 7647909-3 (Version None)
Quarter: 2011Q3

REPORT INFORMATION
  Report Type: 
  Country: None (occurrence: None)
  Receive Date: 20110801
  Receipt Date: 20110721
  Transmission Date: 20111222
  Serious: Yes (Death, Hospitalization)
  Sender: FDA-Public Use
  Company Number: NO-TEVA-291806ISR

PATIENT
  Sex: Male

DRUGS (6)
  1. MEDROL [Concomitant]
     Dates: start: 20110610, end: 20110611
  2. CISPLATIN [Suspect]
     Indication: NEOPLASM MALIGNANT
     Dosage: FIRST DOSE JUNE 20110610, SECOND DOSE 20110630
     Dates: start: 20110610, end: 20110707
  3. AFIPRAN (METOCLOPRAMIDE HYDROCHLORIDE) [Concomitant]
  4. XELODA [Suspect]
     Indication: NEOPLASM MALIGNANT
     Dosage: GIVEN DAILY ON DAYS BETWEEN ETOPOSID AND CISPLATIN
     Dates: start: 20110610, end: 20110707
  5. ONDANSETRON [Concomitant]
     Dates: start: 20110610, end: 20110611
  6. ETOPOSIDE [Suspect]
     Indication: NEOPLASM MALIGNANT
     Dosage: FIRST DOSE 20110610, SECOND DOSE 20110630
     Dates: start: 20110610, end: 20110707

REACTIONS (4)
  - DIARRHOEA [None]
  - PERIPHERAL EMBOLISM [None]
  - ELECTROLYTE IMBALANCE [None]
  - RENAL FAILURE ACUTE [None]
